FAERS Safety Report 20998472 (Version 1)
Quarter: 2022Q2

REPORT INFORMATION
  Report Type: Spontaneous
  Country: None (occurrence: US)
  Receive Date: 20220623
  Receipt Date: 20220623
  Transmission Date: 20220720
  Serious: No
  Sender: FDA-Public Use
  Company Number: US-Mission Pharmacal Company-2130199

PATIENT
  Age: 40 Year
  Sex: Female

DRUGS (1)
  1. THIOLA EC [Suspect]
     Active Substance: TIOPRONIN
     Indication: Calculus urinary
     Route: 048
     Dates: start: 20220113

REACTIONS (3)
  - Fatigue [Unknown]
  - Hypercalcaemia [Unknown]
  - Drug ineffective [Unknown]
